FAERS Safety Report 11659337 (Version 5)
Quarter: 2016Q1

REPORT INFORMATION
  Report Type: Spontaneous
  Country: CA (occurrence: CA)
  Receive Date: 20151026
  Receipt Date: 20160218
  Transmission Date: 20160525
  Serious: Yes (Other)
  Sender: FDA-Public Use
  Company Number: CA-ROCHE-1635327

PATIENT
  Age: 12 Year
  Sex: Male

DRUGS (10)
  1. ZENHALE [Concomitant]
     Active Substance: FORMOTEROL FUMARATE\MOMETASONE FUROATE
  2. EPIPEN [Concomitant]
     Active Substance: EPINEPHRINE
  3. BETADERM (CANADA) [Concomitant]
  4. XOLAIR [Suspect]
     Active Substance: OMALIZUMAB
     Indication: ASTHMA
     Route: 058
     Dates: start: 20150707
  5. XOLAIR [Suspect]
     Active Substance: OMALIZUMAB
     Route: 058
  6. XOLAIR [Suspect]
     Active Substance: OMALIZUMAB
     Route: 058
     Dates: start: 20151211
  7. VENTOLIN [Concomitant]
     Active Substance: ALBUTEROL SULFATE
  8. XOLAIR [Suspect]
     Active Substance: OMALIZUMAB
     Route: 058
     Dates: start: 20150915
  9. XOLAIR [Suspect]
     Active Substance: OMALIZUMAB
     Route: 058
     Dates: start: 20151013
  10. XOLAIR [Suspect]
     Active Substance: OMALIZUMAB
     Route: 058
     Dates: start: 20151110

REACTIONS (15)
  - Swelling [Recovering/Resolving]
  - Pain [Unknown]
  - Pain in extremity [Recovered/Resolved]
  - Lip pain [Unknown]
  - Dizziness [Recovered/Resolved]
  - Headache [Recovered/Resolved]
  - Arthralgia [Recovered/Resolved]
  - Dyspnoea [Unknown]
  - Hypoaesthesia [Recovered/Resolved]
  - Urticaria [Unknown]
  - Movement disorder [Recovered/Resolved]
  - Ankle fracture [Unknown]
  - Heart rate increased [Unknown]
  - Lip dry [Unknown]
  - Crying [Unknown]

NARRATIVE: CASE EVENT DATE: 20151110
